FAERS Safety Report 6412427-7 (Version None)
Quarter: 2009Q4

REPORT INFORMATION
  Report Type: 
  Country: None (occurrence: None)
  Receive Date: 20091023
  Receipt Date: 20090825
  Transmission Date: 20100525
  Serious: No
  Sender: FDA-Public Use
  Company Number: DK-MERCK-0906DNK00005

PATIENT
  Sex: Male
  Weight: 120 kg

DRUGS (1)
  1. JANUVIA [Suspect]
     Indication: TYPE 1 DIABETES MELLITUS
     Route: 048
     Dates: start: 20090505, end: 20090528

REACTIONS (7)
  - ABDOMINAL DISCOMFORT [None]
  - ARTHRALGIA [None]
  - CEREBRAL HAEMORRHAGE [None]
  - DYSPNOEA [None]
  - HEADACHE [None]
  - RHINORRHOEA [None]
  - SPEECH DISORDER [None]
